FAERS Safety Report 4924499-7 (Version None)
Quarter: 2006Q1

REPORT INFORMATION
  Report Type: 
  Country: None (occurrence: None)
  Receive Date: 20060222
  Receipt Date: 20060207
  Transmission Date: 20060701
  Serious: Yes (Life-Threatening, Hospitalization)
  Sender: FDA-Public Use
  Company Number: 8015013

PATIENT
  Sex: Female

DRUGS (1)
  1. KEPPRA [Suspect]
     Dates: start: 20060101

REACTIONS (2)
  - PNEUMONIA ASPIRATION [None]
  - STATUS EPILEPTICUS [None]
